FAERS Safety Report 7961863-6 (Version None)
Quarter: 2011Q4

REPORT INFORMATION
  Report Type: 
  Country: None (occurrence: None)
  Receive Date: 20111202
  Receipt Date: 20111202
  Transmission Date: 20120403
  Serious: Yes (Death)
  Sender: FDA-Public Use
  Company Number: None

PATIENT
  Sex: Male
  Weight: 92.6 kg

DRUGS (1)
  1. ERBITUX [Suspect]
     Dosage: 1620 MG
     Dates: end: 20101105

REACTIONS (1)
  - DEATH [None]
